FAERS Safety Report 9926018 (Version 1)
Quarter: 2014Q1

REPORT INFORMATION
  Report Type: Spontaneous
  Country: GB (occurrence: GB)
  Receive Date: 20140226
  Receipt Date: 20140226
  Transmission Date: 20141002
  Serious: Yes (Hospitalization)
  Sender: FDA-Public Use
  Company Number: GB-TEVA-463360ISR

PATIENT
  Sex: 0

DRUGS (1)
  1. ESTRADIOL [Suspect]

REACTIONS (1)
  - Osteoporosis [Unknown]
